FAERS Safety Report 24358100 (Version 1)
Quarter: 2024Q3

REPORT INFORMATION
  Report Type: Report from Study
  Country: JP (occurrence: JP)
  Receive Date: 20240924
  Receipt Date: 20240924
  Transmission Date: 20241016
  Serious: Yes (Hospitalization, Disabling)
  Sender: RECORDATI
  Company Number: JP-RECORDATI RARE DISEASE INC.-2024007346

PATIENT

DRUGS (2)
  1. NEOPROFEN [Suspect]
     Active Substance: IBUPROFEN LYSINE
     Indication: Patent ductus arteriosus
     Dosage: 10 MILLIGRAM/KILOGRAM
     Route: 042
     Dates: start: 20220226, end: 20220226
  2. AMPICILLIN [Concomitant]
     Active Substance: AMPICILLIN
     Indication: Product used for unknown indication
     Dosage: UNK
     Dates: start: 20220225, end: 20220306

REACTIONS (2)
  - Hypoglycaemic encephalopathy [Recovered/Resolved with Sequelae]
  - Meconium ileus [Recovering/Resolving]

NARRATIVE: CASE EVENT DATE: 20220227
